FAERS Safety Report 24261554 (Version 1)
Quarter: 2024Q3

REPORT INFORMATION
  Report Type: Spontaneous
  Country: BE (occurrence: BE)
  Receive Date: 20240829
  Receipt Date: 20240829
  Transmission Date: 20241016
  Serious: Yes (Other)
  Sender: AMGEN
  Company Number: BE-ROCHE-3388360

PATIENT
  Age: 51 Year
  Sex: Female
  Weight: 54.1 kg

DRUGS (18)
  1. TRASTUZUMAB [Suspect]
     Active Substance: TRASTUZUMAB
     Indication: Breast cancer metastatic
     Dosage: 320 MILLIGRAM, Q3WK (LAST DOSE OF STUDY DRUG ADMIN PRIOR AE IS 320 MG. ON 27/JUN/2023 AT 11:03 AM, S
     Route: 040
  2. TRASTUZUMAB [Suspect]
     Active Substance: TRASTUZUMAB
     Dosage: 430 MILLIGRAM, Q3WK (LAST DOSE OF STUDY DRUG ADMIN PRIOR AE IS 320 MG. ON 27/JUN/2023 AT 11:03 AM, S
     Route: 040
     Dates: start: 20230605
  3. RUNIMOTAMAB [Suspect]
     Active Substance: RUNIMOTAMAB
     Indication: Breast cancer metastatic
     Dosage: 20 MILLIGRAM, Q3WK (SHE RECEIVED LAST DOSE OF RUNIMOTAMAB PRIOR AE IS 20 MG,DOSE CONCENTRATION WAS 4
     Route: 040
     Dates: start: 20230606
  4. ACETAMINOPHEN [Concomitant]
     Active Substance: ACETAMINOPHEN
     Indication: Infusion related reaction
     Dosage: 1 GRAM
     Route: 040
     Dates: start: 20230605, end: 20230605
  5. LORMETAZEPAM [Concomitant]
     Active Substance: LORMETAZEPAM
     Indication: Anxiety
     Dosage: 1 MILLIGRAM, QD
     Route: 048
     Dates: start: 202101
  6. SODIUM CHLORIDE [Concomitant]
     Active Substance: SODIUM CHLORIDE
     Indication: Hypotension
     Dosage: 500 MILLILITER
     Route: 040
     Dates: start: 20230607, end: 20230607
  7. SOLU-MEDROL [Concomitant]
     Active Substance: METHYLPREDNISOLONE SODIUM SUCCINATE
     Indication: Infusion related reaction
     Dosage: 125 MILLIGRAM
     Route: 040
     Dates: start: 20230605, end: 20230605
  8. ETILEFRINE HYDROCHLORIDE [Concomitant]
     Active Substance: ETILEFRINE HYDROCHLORIDE
     Indication: Hypotension
     Dosage: 5 MILLIGRAM
     Route: 048
     Dates: start: 20230628
  9. DAFALGAN [Concomitant]
     Active Substance: ACETAMINOPHEN
     Indication: Cytokine release syndrome
     Dosage: 1 GRAM
     Route: 048
     Dates: start: 20230627, end: 20230627
  10. DAFALGAN [Concomitant]
     Active Substance: ACETAMINOPHEN
     Dosage: 1 GRAM
     Route: 048
     Dates: start: 20230704, end: 20230704
  11. DAFALGAN [Concomitant]
     Active Substance: ACETAMINOPHEN
     Dosage: 1 GRAM
     Route: 048
     Dates: start: 20230606, end: 20230606
  12. ESTIVAN [Concomitant]
     Indication: Infusion related reaction
     Dosage: 10 MILLIGRAM
     Route: 048
     Dates: start: 20230606, end: 20230606
  13. ESTIVAN [Concomitant]
     Dosage: 10 MILLIGRAM
     Route: 048
     Dates: start: 20230627, end: 20230627
  14. ESTIVAN [Concomitant]
     Dosage: 10 MILLIGRAM
     Route: 048
     Dates: end: 20230704
  15. DEXAMETHASONE [Concomitant]
     Active Substance: DEXAMETHASONE
     Indication: Product used for unknown indication
     Dosage: 20 MILLIGRAM
     Route: 040
     Dates: start: 20230606, end: 20230606
  16. FENTANYL [Concomitant]
     Active Substance: FENTANYL\FENTANYL CITRATE
     Indication: Bone pain
     Dosage: 74 UG/H
     Route: 062
     Dates: start: 201605
  17. Flucloxacilline fresenius kabi [Concomitant]
     Indication: Device related infection
     Dosage: UNK
     Route: 040
     Dates: start: 20230608, end: 20230608
  18. Flucloxacilline fresenius kabi [Concomitant]
     Dosage: UNK
     Route: 040
     Dates: start: 20230609, end: 20230614

REACTIONS (1)
  - Cytokine release syndrome [Recovered/Resolved]

NARRATIVE: CASE EVENT DATE: 20230705
